FAERS Safety Report 4263590-8 (Version None)
Quarter: 2004Q1

REPORT INFORMATION
  Report Type: 
  Country: None (occurrence: None)
  Receive Date: 20040105
  Receipt Date: 20031203
  Transmission Date: 20041129
  Serious: Yes (Other)
  Sender: FDA-Public Use
  Company Number: PHBS2003JP13634

PATIENT
  Age: 75 Year
  Sex: Male

DRUGS (4)
  1. DIOVAN [Suspect]
     Indication: HYPERTENSION
     Dosage: 80 MG/DAY
     Route: 048
     Dates: start: 20020409, end: 20031202
  2. SOLON [Concomitant]
     Indication: GASTRITIS
     Dosage: 200 MG/DAY
     Route: 048
     Dates: start: 20020409, end: 20031202
  3. LENDORMIN [Concomitant]
     Indication: SLEEP DISORDER
     Dosage: 0.25 MG/DAY
     Route: 048
     Dates: start: 20020509, end: 20031202
  4. ANTITUSSIVES [Suspect]

REACTIONS (3)
  - DRUG ERUPTION [None]
  - NASOPHARYNGITIS [None]
  - TOXIC EPIDERMAL NECROLYSIS [None]
